FAERS Safety Report 7319136-0 (Version None)
Quarter: 2011Q1

REPORT INFORMATION
  Report Type: 
  Country: None (occurrence: None)
  Receive Date: 20110216
  Receipt Date: 20110201
  Transmission Date: 20110831
  Serious: Yes (Death, Hospitalization)
  Sender: FDA-Public Use
  Company Number: FK201100090

PATIENT
  Age: 40 Year
  Sex: Male

DRUGS (1)
  1. HEPARIN SODIUM [Suspect]
     Indication: ANTICOAGULATION DRUG LEVEL THERAPEUTIC

REACTIONS (10)
  - PULMONARY FIBROSIS [None]
  - HEPATIC FAILURE [None]
  - LUNG DISORDER [None]
  - DIFFUSE ALVEOLAR DAMAGE [None]
  - BRONCHOPULMONARY ASPERGILLOSIS [None]
  - MULTI-ORGAN FAILURE [None]
  - LUNG TRANSPLANT [None]
  - TRANSPLANT FAILURE [None]
  - HEPARIN-INDUCED THROMBOCYTOPENIA [None]
  - POST PROCEDURAL HAEMORRHAGE [None]
